FAERS Safety Report 8231159-6 (Version None)
Quarter: 2012Q1

REPORT INFORMATION
  Report Type: 
  Country: None (occurrence: None)
  Receive Date: 20120323
  Receipt Date: 20120323
  Transmission Date: 20120608
  Serious: Yes (Other)
  Sender: FDA-Public Use
  Company Number: None

PATIENT
  Age: 54 Year
  Sex: Female
  Weight: 74.842 kg

DRUGS (2)
  1. LEVOFLOXACIN [Suspect]
     Indication: BRONCHITIS
     Route: 048
     Dates: start: 20120114, end: 20120123
  2. LEVOFLOXACIN [Suspect]
     Indication: PNEUMONIA
     Route: 048
     Dates: start: 20120114, end: 20120123

REACTIONS (8)
  - TENDON RUPTURE [None]
  - IMPAIRED DRIVING ABILITY [None]
  - MUSCULOSKELETAL PAIN [None]
  - IMPAIRED WORK ABILITY [None]
  - COLD SWEAT [None]
  - TENDON INJURY [None]
  - TENDONITIS [None]
  - INSOMNIA [None]
